FAERS Safety Report 4405302-0 (Version None)
Quarter: 2004Q3

REPORT INFORMATION
  Report Type: 
  Country: None (occurrence: None)
  Receive Date: 20040723
  Receipt Date: 20040720
  Transmission Date: 20050211
  Serious: Yes (Death)
  Sender: FDA-Public Use
  Company Number: PHEH2004US07891

PATIENT
  Sex: Female

DRUGS (5)
  1. ESTROGEN [Suspect]
  2. PREMARIN [Suspect]
  3. PREMPRO [Suspect]
  4. PROVERA [Suspect]
  5. MEDROXYPROGESTERONE ACETATE [Suspect]

REACTIONS (3)
  - BREAST CANCER [None]
  - MASTECTOMY [None]
  - METASTASES TO BONE [None]
